FAERS Safety Report 16172725 (Version 4)
Quarter: 2020Q1

REPORT INFORMATION
  Report Type: Spontaneous
  Country: US (occurrence: US)
  Receive Date: 20190409
  Receipt Date: 20200313
  Transmission Date: 20200409
  Serious: Yes (Other)
  Sender: FDA-Public Use
  Company Number: US-ASTRAZENECA-2019SE09417

PATIENT
  Age: 56 Year
  Sex: Male
  Weight: 132.4 kg

DRUGS (7)
  1. TEKTURNA [Concomitant]
     Active Substance: ALISKIREN HEMIFUMARATE
  2. NEXIUM [Suspect]
     Active Substance: ESOMEPRAZOLE MAGNESIUM
     Indication: GASTROOESOPHAGEAL REFLUX DISEASE
     Dosage: 2 TABLET A DAY
     Route: 048
     Dates: start: 200205, end: 201508
  3. ALLOPURINOL. [Concomitant]
     Active Substance: ALLOPURINOL
  4. NEXIUM [Suspect]
     Active Substance: ESOMEPRAZOLE MAGNESIUM
     Indication: GASTROOESOPHAGEAL REFLUX DISEASE
     Route: 048
     Dates: start: 20090101
  5. NEXIUM [Suspect]
     Active Substance: ESOMEPRAZOLE MAGNESIUM
     Indication: GASTROOESOPHAGEAL REFLUX DISEASE
     Dosage: 2 TABLET A DAY
     Route: 048
     Dates: start: 200205, end: 201508
  6. TRAMADOL. [Concomitant]
     Active Substance: TRAMADOL
  7. GLYBURIDE. [Concomitant]
     Active Substance: GLYBURIDE

REACTIONS (5)
  - Chronic kidney disease [Unknown]
  - Renal impairment [Not Recovered/Not Resolved]
  - Renal failure [Unknown]
  - Rebound acid hypersecretion [Unknown]
  - Renal injury [Unknown]

NARRATIVE: CASE EVENT DATE: 2010
